FAERS Safety Report 11050153 (Version 3)
Quarter: 2015Q2

REPORT INFORMATION
  Report Type: Spontaneous
  Country: US (occurrence: US)
  Receive Date: 20150420
  Receipt Date: 20150522
  Transmission Date: 20150821
  Serious: No
  Sender: FDA-Public Use
  Company Number: US-009507513-1504USA016626

PATIENT
  Age: 23 Year
  Sex: Female
  Weight: 81.63 kg

DRUGS (2)
  1. DEPAKOTE [Concomitant]
     Active Substance: DIVALPROEX SODIUM
     Dosage: UNK
  2. NEXPLANON [Suspect]
     Active Substance: ETONOGESTREL
     Indication: CONTRACEPTION
     Dosage: UNK, LEFT ARM
     Route: 059
     Dates: start: 20140625

REACTIONS (6)
  - Medical device complication [Not Recovered/Not Resolved]
  - Device dislocation [Not Recovered/Not Resolved]
  - Device difficult to use [Not Recovered/Not Resolved]
  - Drug dose omission [Not Recovered/Not Resolved]
  - Device deployment issue [Not Recovered/Not Resolved]
  - Unintended pregnancy [Not Recovered/Not Resolved]

NARRATIVE: CASE EVENT DATE: 20140625
